FAERS Safety Report 15277145 (Version 1)
Quarter: 2018Q3

REPORT INFORMATION
  Report Type: Spontaneous
  Country: FR (occurrence: FR)
  Receive Date: 20180814
  Receipt Date: 20180814
  Transmission Date: 20181010
  Serious: No
  Sender: FDA-Public Use
  Company Number: FR-JAZZ-2018-FR-011633

PATIENT

DRUGS (5)
  1. XYREM [Suspect]
     Active Substance: SODIUM OXYBATE
     Indication: NARCOLEPSY
     Dosage: 2.25 G, BID
     Route: 065
     Dates: start: 20170705, end: 201707
  2. WAKIX [Concomitant]
     Active Substance: PITOLISANT HYDROCHLORIDE
  3. XYREM [Suspect]
     Active Substance: SODIUM OXYBATE
     Dosage: 5.25 G
     Route: 065
     Dates: start: 20180708
  4. XYREM [Suspect]
     Active Substance: SODIUM OXYBATE
     Indication: CATAPLEXY
     Dosage: 3 G, BID
     Route: 065
     Dates: start: 201707
  5. RUBOZINC [Concomitant]
     Active Substance: ZINC GLUCONATE

REACTIONS (7)
  - Moaning [Unknown]
  - Retching [Unknown]
  - Fatigue [Unknown]
  - Incorrect dose administered [Unknown]
  - Pain [Unknown]
  - Weight decreased [Unknown]
  - Somnolence [Unknown]

NARRATIVE: CASE EVENT DATE: 20180708
